FAERS Safety Report 19810319 (Version 1)
Quarter: 2021Q3

REPORT INFORMATION
  Report Type: Spontaneous
  Country: DE (occurrence: DE)
  Receive Date: 20210909
  Receipt Date: 20210909
  Transmission Date: 20211014
  Serious: Yes (Other)
  Sender: FDA-Public Use
  Company Number: DE-MYLANLABS-2021M1058861

PATIENT
  Age: 80 Year
  Sex: Female

DRUGS (3)
  1. RISEDRONATE [Suspect]
     Active Substance: RISEDRONATE SODIUM
     Indication: OSTEOPOROSIS
  2. RISEDRONATE [Suspect]
     Active Substance: RISEDRONATE SODIUM
     Indication: RHEUMATOID ARTHRITIS
     Dosage: THERAPY DURATION: 2Y
     Route: 048
  3. DENOSUMAB [Suspect]
     Active Substance: DENOSUMAB
     Indication: BREAST CANCER
     Dosage: THERAPY DURATION: 4Y
     Route: 058

REACTIONS (5)
  - Pathological fracture [Unknown]
  - Peri-implantitis [Unknown]
  - Surgery [Unknown]
  - Off label use [Unknown]
  - Osteonecrosis of jaw [Unknown]
